FAERS Safety Report 11311423 (Version 2)
Quarter: 2015Q3

REPORT INFORMATION
  Report Type: Spontaneous
  Country: FR (occurrence: FR)
  Receive Date: 20150727
  Receipt Date: 20150805
  Transmission Date: 20151125
  Serious: Yes (Hospitalization, Other)
  Sender: FDA-Public Use
  Company Number: FR-009507513-1507FRA008578

PATIENT
  Age: 60 Year
  Sex: Male

DRUGS (12)
  1. OROKEN [Suspect]
     Active Substance: CEFIXIME
     Dosage: 1 DF, BID
     Route: 048
     Dates: start: 20150331, end: 20150402
  2. ELIQUIS [Suspect]
     Active Substance: APIXABAN
     Indication: ATRIAL FIBRILLATION
     Dosage: 1 DF, BID
     Route: 048
     Dates: start: 20150218, end: 20150402
  3. ALDACTONE [Suspect]
     Active Substance: SPIRONOLACTONE
     Dosage: 0.5 DF, QD
     Route: 048
     Dates: end: 20150402
  4. EUPANTOL [Concomitant]
     Active Substance: PANTOPRAZOLE SODIUM
     Dosage: 1 TABLET, DAILY
     Route: 048
  5. NEUROTIN (ACETYLCARNITINE HYDROCHLORIDE) [Suspect]
     Active Substance: ACETYLCARNITINE HYDROCHLORIDE
     Route: 048
  6. ALLOPURINOL. [Suspect]
     Active Substance: ALLOPURINOL
     Dosage: 200 MG, QD
     Route: 048
     Dates: end: 20150402
  7. DOLIPRANE [Concomitant]
     Active Substance: ACETAMINOPHEN
     Route: 048
  8. LIORESAL [Suspect]
     Active Substance: BACLOFEN
  9. EZETROL [Suspect]
     Active Substance: EZETIMIBE
     Dosage: 1 DF, QD
     Route: 048
     Dates: end: 20150402
  10. SALAZOPYRINE [Suspect]
     Active Substance: SULFASALAZINE
     Indication: RHEUMATOID ARTHRITIS
     Dosage: 3 DF, QD
     Route: 048
     Dates: start: 20150205, end: 20150326
  11. CORTANCYL [Concomitant]
     Active Substance: PREDNISONE
     Route: 048
  12. FLECAINE [Concomitant]
     Active Substance: FLECAINIDE
     Dosage: UNK
     Route: 048
     Dates: start: 20150218

REACTIONS (3)
  - Pyrexia [Recovered/Resolved]
  - Neutropenia [Recovered/Resolved]
  - Agranulocytosis [Recovered/Resolved]

NARRATIVE: CASE EVENT DATE: 20150326
